FAERS Safety Report 23756254 (Version 1)
Quarter: 2024Q2

REPORT INFORMATION
  Report Type: Spontaneous
  Country: US (occurrence: None)
  Receive Date: 20240417
  Receipt Date: 20240417
  Transmission Date: 20240716
  Serious: No
  Sender: FDA-Public Use
  Company Number: None

PATIENT
  Sex: Male

DRUGS (1)
  1. REPATHA [Suspect]
     Active Substance: EVOLOCUMAB
     Dosage: FREQ: INJECT 1 PEN UNDER THE SKIN (SUBCUTANEOUS INJECTION) EVERY 14 DAYS
     Route: 058
     Dates: start: 20191231

REACTIONS (2)
  - Haemorrhage [None]
  - Intentional dose omission [None]
